FAERS Safety Report 26196113 (Version 1)
Quarter: 2025Q4

REPORT INFORMATION
  Report Type: Report from Study
  Country: US (occurrence: US)
  Receive Date: 20251224
  Receipt Date: 20251224
  Transmission Date: 20260118
  Serious: Yes (Other)
  Sender: OTSUKA
  Company Number: US-MMM-Otsuka-CGIWS8LQ

PATIENT
  Sex: Female

DRUGS (6)
  1. ARIPIPRAZOLE [Suspect]
     Active Substance: ARIPIPRAZOLE
     Indication: Bipolar disorder
     Dosage: 300 MG
     Route: 065
  2. ARIPIPRAZOLE [Suspect]
     Active Substance: ARIPIPRAZOLE
     Dosage: 300 MG, EVERY 3 WEEKS
     Route: 065
  3. ARIPIPRAZOLE [Suspect]
     Active Substance: ARIPIPRAZOLE
  4. ARIPIPRAZOLE [Suspect]
     Active Substance: ARIPIPRAZOLE
  5. ABILIFY ASIMTUFII [Suspect]
     Active Substance: ARIPIPRAZOLE
     Indication: Bipolar disorder
     Dosage: 960 MG, EVERY 2 MONTHS
  6. ABILIFY ASIMTUFII [Suspect]
     Active Substance: ARIPIPRAZOLE
     Dosage: 960 MG, EVERY 6 WEEKS (FREQUENCY DECREASED)

REACTIONS (3)
  - Hallucination, auditory [Unknown]
  - Inappropriate schedule of product administration [Unknown]
  - Therapeutic response shortened [Unknown]
